FAERS Safety Report 23176032 (Version 1)
Quarter: 2023Q4

REPORT INFORMATION
  Report Type: Spontaneous
  Country: US (occurrence: US)
  Receive Date: 20231113
  Receipt Date: 20231113
  Transmission Date: 20240109
  Serious: No
  Sender: FDA-Public Use
  Company Number: US-OPELLA-2023OHG013095

PATIENT
  Sex: Female

DRUGS (1)
  1. DULCOLAX LAXATIVE [Suspect]
     Active Substance: BISACODYL
     Route: 065

REACTIONS (1)
  - Blood glucose increased [Unknown]
